FAERS Safety Report 12958240 (Version 4)
Quarter: 2017Q2

REPORT INFORMATION
  Report Type: Report from Study
  Country: CA (occurrence: CA)
  Receive Date: 20161120
  Receipt Date: 20170510
  Transmission Date: 20170830
  Serious: Yes (Other)
  Sender: FDA-Public Use
  Company Number: PHHY2016CA074156

PATIENT
  Age: 64 Year
  Sex: Female

DRUGS (2)
  1. METOPROLOL. [Suspect]
     Active Substance: METOPROLOL
     Indication: PRODUCT USED FOR UNKNOWN INDICATION
     Dosage: 12.5 MG (1/4 TABLET), BID
     Route: 048
  2. SANDOSTATIN LAR DEPOT [Suspect]
     Active Substance: OCTREOTIDE ACETATE
     Indication: CARCINOID TUMOUR OF THE GASTROINTESTINAL TRACT
     Dosage: 30 MG, QMO (EVERY 4 WEEKS)
     Route: 030
     Dates: start: 20160209

REACTIONS (8)
  - Viral upper respiratory tract infection [Recovered/Resolved]
  - Asthenia [Recovering/Resolving]
  - Blood pressure systolic increased [Unknown]
  - Oropharyngeal pain [Recovered/Resolved]
  - Malignant neoplasm progression [Unknown]
  - Pulmonary congestion [Recovering/Resolving]
  - Blood pressure diastolic increased [Unknown]
  - Cough [Recovering/Resolving]

NARRATIVE: CASE EVENT DATE: 20160525
